FAERS Safety Report 5190750-4 (Version None)
Quarter: 2006Q4

REPORT INFORMATION
  Report Type: 
  Country: None (occurrence: None)
  Receive Date: 20061222
  Receipt Date: 20061214
  Transmission Date: 20070319
  Serious: Yes (Hospitalization)
  Sender: FDA-Public Use
  Company Number: FR-ROCHE-475421

PATIENT
  Age: 85 Year
  Sex: Female

DRUGS (11)
  1. ROCEPHIN [Suspect]
     Dosage: FORM REPORTE AS INJECTABLE SOLUTION.
     Route: 030
     Dates: start: 20061115, end: 20061121
  2. FUROSEMIDE [Concomitant]
  3. NISIS [Concomitant]
  4. STABLON [Concomitant]
  5. LEVOTHYROXINE SODIUM [Concomitant]
  6. ASPIRIN [Concomitant]
  7. PERINDOPRIL ERBUMINE [Concomitant]
  8. LANTUS [Concomitant]
  9. HALDOL [Concomitant]
     Dosage: DRUG NAME REPORTED AS HALDOL F.
  10. DACRYOSERUM [Concomitant]
  11. IMOVANE [Concomitant]

REACTIONS (5)
  - LEUKOCYTOSIS [None]
  - NEUTROPHIL COUNT INCREASED [None]
  - RASH [None]
  - RASH PUSTULAR [None]
  - WHITE BLOOD CELL COUNT INCREASED [None]
